FAERS Safety Report 4958968-0 (Version None)
Quarter: 2006Q1

REPORT INFORMATION
  Report Type: 
  Country: None (occurrence: None)
  Receive Date: 20060331
  Receipt Date: 20060319
  Transmission Date: 20060701
  Serious: Yes (Other)
  Sender: FDA-Public Use
  Company Number: PHBS2006BR04321

PATIENT
  Age: 64 Year
  Sex: Female

DRUGS (9)
  1. TEGRETOL [Suspect]
     Indication: COMPLEX PARTIAL SEIZURES
     Dosage: 800 MG/DAY
     Route: 048
     Dates: start: 20020617
  2. GARDENAL [Concomitant]
  3. TYLENOL (CAPLET) [Concomitant]
     Indication: HEADACHE
  4. NARAMIG [Concomitant]
     Indication: HEADACHE
  5. BUDESONIDE [Concomitant]
     Indication: RHINITIS ALLERGIC
  6. AVENO [Concomitant]
     Indication: DRY SKIN
  7. VEGETAL OIL [Concomitant]
     Indication: DRY SKIN
  8. QUADRIDERM [Concomitant]
     Indication: DRY SKIN
  9. CLORANA [Concomitant]
     Indication: HYPERTENSION

REACTIONS (3)
  - AGEUSIA [None]
  - DRY MOUTH [None]
  - HYPERGLYCAEMIA [None]
